FAERS Safety Report 15012520 (Version 1)
Quarter: 2018Q2

REPORT INFORMATION
  Report Type: Spontaneous
  Country: CN (occurrence: CN)
  Receive Date: 20180614
  Receipt Date: 20180614
  Transmission Date: 20180711
  Serious: Yes (Other)
  Sender: FDA-Public Use
  Company Number: CN-MYLANLABS-2018M1039771

PATIENT
  Age: 61 Year

DRUGS (7)
  1. CARBOPLATIN. [Suspect]
     Active Substance: CARBOPLATIN
     Dosage: ONE CYCLE WITH PEMETREXED, PRIOR TO RADIOTHERAPY
     Route: 065
     Dates: end: 201603
  2. CARBOPLATIN. [Suspect]
     Active Substance: CARBOPLATIN
     Indication: SMALL CELL LUNG CANCER
     Dosage: 2 CYCLES WITH ETOPOSIDE AND CISPLATIN
     Route: 065
     Dates: end: 201510
  3. CARBOPLATIN. [Suspect]
     Active Substance: CARBOPLATIN
     Dosage: 2 CYCLES OF ADJUVANT CHEMOTHERAPY WITH ETOPOSIDE
     Route: 065
     Dates: end: 201601
  4. ETOPOSIDE. [Suspect]
     Active Substance: ETOPOSIDE
     Indication: SMALL CELL LUNG CANCER
     Dosage: 2 CYCLES WITH CARBOPLATIN AND CISPLATIN
     Route: 065
     Dates: end: 201510
  5. ETOPOSIDE. [Suspect]
     Active Substance: ETOPOSIDE
     Dosage: 2 CYCLES OF ADJUVANT CHEMOTHERAPY WITH CARBOPLATIN
     Route: 065
     Dates: end: 201601
  6. CISPLATIN. [Suspect]
     Active Substance: CISPLATIN
     Indication: SMALL CELL LUNG CANCER
     Dosage: 2 CYCLES WITH CARBOPLATIN AND ETOPOSIDE
     Route: 065
     Dates: end: 201510
  7. PEMETREXED. [Suspect]
     Active Substance: PEMETREXED
     Indication: SMALL CELL LUNG CANCER
     Dosage: ONE CYCLE WITH CARBOPLATIN, PRIOR TO RADIOTHERAPY
     Route: 065
     Dates: end: 201603

REACTIONS (1)
  - Therapy non-responder [Unknown]
